FAERS Safety Report 14125185 (Version 1)
Quarter: 2017Q4

REPORT INFORMATION
  Report Type: Spontaneous
  Country: FR (occurrence: FR)
  Receive Date: 20171025
  Receipt Date: 20171025
  Transmission Date: 20180321
  Serious: Yes (Death, Congenital Anomaly)
  Sender: FDA-Public Use
  Company Number: FR-MERCK KGAA-2031388

PATIENT

DRUGS (1)
  1. NOVOTHYROX [Suspect]
     Active Substance: LEVOTHYROXINE SODIUM
     Indication: AUTOIMMUNE THYROIDITIS
     Route: 050

REACTIONS (3)
  - Ultrasound antenatal screen [Fatal]
  - Foetal death [Fatal]
  - Foetal exposure during pregnancy [None]

NARRATIVE: CASE EVENT DATE: 201709
